FAERS Safety Report 6763620-5 (Version None)
Quarter: 2010Q2

REPORT INFORMATION
  Report Type: 
  Country: None (occurrence: None)
  Receive Date: 20100610
  Receipt Date: 20100603
  Transmission Date: 20101027
  Serious: Yes (Death, Life-Threatening)
  Sender: FDA-Public Use
  Company Number: CA-SANOFI-AVENTIS-200819969GDDC

PATIENT
  Age: 78 Year
  Sex: Male

DRUGS (17)
  1. PLACEBO [Suspect]
     Dosage: DOSE UNIT: 6 MG/KG
     Route: 042
     Dates: start: 20080825, end: 20080825
  2. PLACEBO [Suspect]
     Dosage: DOSE UNIT: 6 MG/KG
     Route: 042
     Dates: start: 20080604, end: 20080604
  3. DOCETAXEL [Suspect]
     Dosage: DOSE UNIT: 75 MG/M**2
     Route: 042
     Dates: start: 20080825, end: 20080825
  4. DOCETAXEL [Suspect]
     Dosage: DOSE UNIT: 75 MG/M**2
     Route: 042
     Dates: start: 20080604, end: 20080604
  5. PREDNISONE [Suspect]
     Route: 048
     Dates: start: 20080604, end: 20081004
  6. COLACE [Concomitant]
     Dates: start: 20060101
  7. SENOKOT /USA/ [Concomitant]
     Dates: start: 20060101
  8. LIPITOR [Concomitant]
     Dates: start: 20040101
  9. RAMIPRIL [Concomitant]
     Dates: start: 20030101
  10. GLYBURIDE [Concomitant]
     Dates: start: 19980101
  11. METFORMIN [Concomitant]
     Dates: start: 19870101
  12. PROCTOSEDYL /CAN/ [Concomitant]
     Dates: start: 20080101
  13. CALCIUM CARBONATE [Concomitant]
     Dates: start: 20080604
  14. VITAMIN D [Concomitant]
     Dates: start: 20080604
  15. URISPAS [Concomitant]
     Dates: start: 20080603
  16. LORAZEPAM [Concomitant]
     Dates: start: 20080603
  17. RABEPRAZOLE SODIUM [Concomitant]
     Dates: start: 20080806

REACTIONS (2)
  - ARRHYTHMIA [None]
  - MYOCARDIAL ISCHAEMIA [None]
